FAERS Safety Report 8717012 (Version 5)
Quarter: 2012Q4

REPORT INFORMATION
  Report Type: 
  Country: JP (occurrence: JP)
  Receive Date: 20120810
  Receipt Date: 20121108
  Transmission Date: 20130627
  Serious: Yes (Hospitalization)
  Sender: FDA-Public Use
  Company Number: JP-JNJFOC-20120802836

PATIENT
  Sex: Female
  Weight: 52 kg

DRUGS (7)
  1. REMICADE [Suspect]
     Indication: COLITIS ULCERATIVE
     Dosage: first dose
     Route: 042
     Dates: start: 20110620
  2. REMICADE [Suspect]
     Indication: COLITIS ULCERATIVE
     Dosage: 4th dose
     Route: 042
     Dates: start: 20111006
  3. IMURAN [Concomitant]
     Indication: COLITIS ULCERATIVE
     Route: 048
  4. CICLOSPORIN [Concomitant]
     Indication: COLITIS ULCERATIVE
     Route: 065
  5. MIYA-BM [Concomitant]
     Indication: COLITIS ULCERATIVE
     Dosage: dose for one treatment: 1 tablet
     Route: 048
     Dates: start: 20110606, end: 20111215
  6. SOLU CORTEF [Concomitant]
     Indication: PREMEDICATION
     Dosage: Route of administration: ^DR^
     Route: 065
     Dates: start: 20110620, end: 20111106
  7. DIPHENHYDRAMINE HYDROCHLORIDE [Concomitant]
     Indication: PREMEDICATION
     Dosage: 4 tablets
     Route: 048
     Dates: start: 20110620, end: 20111106

REACTIONS (1)
  - Takayasu^s arteritis [Recovering/Resolving]
